FAERS Safety Report 5001787-X (Version None)
Quarter: 2006Q2

REPORT INFORMATION
  Report Type: 
  Country: None (occurrence: None)
  Receive Date: 20060512
  Receipt Date: 20060512
  Transmission Date: 20061013
  Serious: Yes (Hospitalization)
  Sender: FDA-Public Use
  Company Number: None

PATIENT
  Age: 71 Year
  Sex: Male
  Weight: 90.7194 kg

DRUGS (3)
  1. EFFEXOR [Suspect]
     Indication: DEPRESSION
     Dosage: 37.5 MG BID PO
     Route: 048
     Dates: start: 20060123, end: 20060430
  2. TRAZADONE 50 MG [Suspect]
     Indication: DEPRESSION
     Dosage: 50 MG QHS PO
     Route: 048
     Dates: start: 20060421, end: 20060511
  3. RISPERIDONE [Concomitant]

REACTIONS (7)
  - INCONTINENCE [None]
  - MOVEMENT DISORDER [None]
  - MUSCLE RIGIDITY [None]
  - MUSCULOSKELETAL STIFFNESS [None]
  - NEUROLEPTIC MALIGNANT SYNDROME [None]
  - SEROTONIN SYNDROME [None]
  - SPEECH DISORDER [None]
